FAERS Safety Report 18354417 (Version 1)
Quarter: 2020Q4

REPORT INFORMATION
  Report Type: Spontaneous
  Country: US (occurrence: US)
  Receive Date: 20201006
  Receipt Date: 20201006
  Transmission Date: 20210114
  Serious: Yes (Hospitalization, Disabling, Other)
  Sender: FDA-Public Use
  Company Number: None

PATIENT
  Age: 77 Year
  Sex: Female
  Weight: 45.9 kg

DRUGS (7)
  1. ?ALBUTEROL SULFATE INHALATION SOL, 2.5 MG NEPHRON PHARMACEUTICALS CORP [Suspect]
     Active Substance: ALBUTEROL SULFATE
     Indication: ARTHRITIS
     Route: 048
  2. TRAMADOL. [Concomitant]
     Active Substance: TRAMADOL
  3. CALCIUM GUMMIES [Concomitant]
  4. LYRICA [Suspect]
     Active Substance: PREGABALIN
     Route: 048
  5. MULTIVITAMINS [Concomitant]
     Active Substance: VITAMINS
  6. LYRICA [Concomitant]
     Active Substance: PREGABALIN
  7. ANTACIDS [Concomitant]
     Active Substance: UNSPECIFIED INGREDIENT

REACTIONS (18)
  - Delusion [None]
  - Depression [None]
  - Balance disorder [None]
  - Bradyphrenia [None]
  - Palpitations [None]
  - Neuropathy peripheral [None]
  - Paranoia [None]
  - Skin atrophy [None]
  - Arthralgia [None]
  - Peripheral swelling [None]
  - Asthenia [None]
  - Dry mouth [None]
  - Hypoaesthesia [None]
  - Psychotic disorder [None]
  - Back pain [None]
  - Cognitive disorder [None]
  - Anxiety [None]
  - Bronchitis [None]

NARRATIVE: CASE EVENT DATE: 20200202
